FAERS Safety Report 16042925 (Version 4)
Quarter: 2019Q1

REPORT INFORMATION
  Report Type: Report from Study
  Country: MX (occurrence: MX)
  Receive Date: 20190306
  Receipt Date: 20190320
  Transmission Date: 20190418
  Serious: Yes (Other)
  Sender: FDA-Public Use
  Company Number: PHHY2019MX050959

PATIENT
  Age: 71 Year
  Sex: Male
  Weight: 92 kg

DRUGS (7)
  1. INSULIN [Concomitant]
     Active Substance: INSULIN NOS
     Indication: DIABETES MELLITUS
     Dosage: AT NIGHT
     Route: 059
  2. EXFORGE HCT [Suspect]
     Active Substance: AMLODIPINE BESYLATE\HYDROCHLOROTHIAZIDE\VALSARTAN
     Indication: HYPERTENSION
     Dosage: 1 DF, QD (AMLODIPINE 5 MG, HYDROCHLOROTHIAZIDE 12.5MG, VALSARTAN 160 MG)
     Route: 048
     Dates: start: 201812, end: 201902
  3. METFORMIN [Concomitant]
     Active Substance: METFORMIN HYDROCHLORIDE
     Indication: DIABETES MELLITUS
     Dosage: 1 DF, TID (3 TIMES DAILY WITH THE MEALS)
     Route: 048
     Dates: start: 20190129
  4. FICONAX [Concomitant]
     Indication: DIABETES MELLITUS
     Dosage: 0.5 DF, BID (IN THE MORNING AND NIGHT)
     Route: 048
     Dates: start: 20190130
  5. CARBAMAZEPINE. [Concomitant]
     Active Substance: CARBAMAZEPINE
     Indication: GLAUCOMA
     Dosage: 1 DF, QD (DAILY AT NIGHT)
     Route: 048
  6. AMLODIPINE [Concomitant]
     Active Substance: AMLODIPINE BESYLATE
     Indication: HYPERTENSION
     Dosage: 1 DF, QD (MIDDAY)
     Route: 048
     Dates: start: 201901
  7. ATORVASTATIN [Concomitant]
     Active Substance: ATORVASTATIN
     Indication: BLOOD TRIGLYCERIDES INCREASED
     Dosage: 1 DF, QD (2 YEARS AGO)
     Route: 048

REACTIONS (3)
  - Drug ineffective [Unknown]
  - Blood pressure increased [Recovered/Resolved]
  - Feeling abnormal [Recovered/Resolved]

NARRATIVE: CASE EVENT DATE: 20190205
